FAERS Safety Report 5957802-X (Version None)
Quarter: 2008Q4

REPORT INFORMATION
  Report Type: 
  Country: None (occurrence: None)
  Receive Date: 20081119
  Receipt Date: 20081019
  Transmission Date: 20090506
  Serious: No
  Sender: FDA-Public Use
  Company Number: US-BAYER-200836287NA

PATIENT
  Age: 27 Year
  Sex: Female

DRUGS (5)
  1. AVELOX [Suspect]
     Indication: DRUG USE FOR UNKNOWN INDICATION
     Route: 042
  2. CEFTIN [Concomitant]
     Dosage: TOTAL DAILY DOSE: 2 DF
  3. SINGULAIR [Concomitant]
     Dosage: TOTAL DAILY DOSE: 1 DF
  4. ADVAIR DISKUS 100/50 [Concomitant]
     Route: 055
  5. XOPENEX [Concomitant]
     Route: 055

REACTIONS (1)
  - PARAESTHESIA [None]
